FAERS Safety Report 22597071 (Version 2)
Quarter: 2024Q3

REPORT INFORMATION
  Report Type: Report from Study
  Country: US (occurrence: US)
  Receive Date: 20230613
  Receipt Date: 20240729
  Transmission Date: 20241016
  Serious: Yes (Other)
  Sender: ABBVIE
  Company Number: US-ABBVIE-5288071

PATIENT
  Age: 64 Year
  Sex: Female

DRUGS (2)
  1. RINVOQ [Suspect]
     Active Substance: UPADACITINIB
     Indication: Colitis ulcerative
     Dosage: FORM STRENGTH 15 MG
     Route: 048
     Dates: start: 202209, end: 2023
  2. RINVOQ [Suspect]
     Active Substance: UPADACITINIB
     Indication: Colitis ulcerative
     Dosage: FORM STRENGTH 15 MG
     Route: 048
     Dates: start: 202312

REACTIONS (9)
  - Hip arthroplasty [Unknown]
  - Malaise [Unknown]
  - Bacterial infection [Unknown]
  - COVID-19 [Unknown]
  - Sinus disorder [Recovered/Resolved]
  - Fatigue [Unknown]
  - Escherichia infection [Unknown]
  - Raynaud^s phenomenon [Unknown]
  - Fatigue [Unknown]

NARRATIVE: CASE EVENT DATE: 20230501
